FAERS Safety Report 23366214 (Version 1)
Quarter: 2024Q1

REPORT INFORMATION
  Report Type: Spontaneous
  Country: US (occurrence: US)
  Receive Date: 20240104
  Receipt Date: 20240104
  Transmission Date: 20240410
  Serious: Yes (Other)
  Sender: FDA-Public Use
  Company Number: US-VIRTUS PHARMACEUTICALS, LLC-2023VTS00046

PATIENT
  Age: 34 Year
  Sex: Female

DRUGS (2)
  1. PROGESTERONE [Suspect]
     Active Substance: PROGESTERONE
     Indication: In vitro fertilisation
  2. ESTROGENS [Suspect]
     Active Substance: ESTROGENS
     Indication: In vitro fertilisation

REACTIONS (1)
  - Phyllodes tumour [Recovered/Resolved]
